FAERS Safety Report 11705987 (Version 3)
Quarter: 2015Q4

REPORT INFORMATION
  Report Type: Spontaneous
  Country: BG (occurrence: BG)
  Receive Date: 20151106
  Receipt Date: 20151120
  Transmission Date: 20160304
  Serious: Yes (Life-Threatening, Hospitalization, Other)
  Sender: FDA-Public Use
  Company Number: BG-ASTRAZENECA-2015SF05648

PATIENT
  Age: 60 Year
  Sex: Male

DRUGS (6)
  1. BRILIQUE [Suspect]
     Active Substance: TICAGRELOR
     Indication: ACUTE CORONARY SYNDROME
     Route: 048
     Dates: start: 20150913, end: 20151028
  2. ASPIRIN. [Concomitant]
     Active Substance: ASPIRIN
     Indication: ACUTE CORONARY SYNDROME
  3. ZOFEN [Concomitant]
     Active Substance: IBUPROFEN
  4. TRIMETAZIDINE [Concomitant]
     Active Substance: TRIMETAZIDINE
  5. ROSUVASTATIN [Concomitant]
     Active Substance: ROSUVASTATIN
  6. BETALOC ZOK [Concomitant]
     Active Substance: METOPROLOL SUCCINATE

REACTIONS (8)
  - Cardiac failure chronic [Not Recovered/Not Resolved]
  - Vascular stent thrombosis [Not Recovered/Not Resolved]
  - Cardiac aneurysm [Not Recovered/Not Resolved]
  - Intermittent claudication [Unknown]
  - Acute myocardial infarction [Not Recovered/Not Resolved]
  - Platelet count increased [Unknown]
  - Coagulopathy [Unknown]
  - Drug ineffective [Unknown]
